FAERS Safety Report 6072980-2 (Version None)
Quarter: 2009Q1

REPORT INFORMATION
  Report Type: 
  Country: None (occurrence: None)
  Receive Date: 20090206
  Receipt Date: 20090126
  Transmission Date: 20090719
  Serious: Yes (Hospitalization, Disabling)
  Sender: FDA-Public Use
  Company Number: 2008PV037171

PATIENT
  Age: 73 Year
  Sex: Female
  Weight: 56.6996 kg

DRUGS (5)
  1. SYMLIN [Suspect]
     Indication: TYPE 2 DIABETES MELLITUS
     Dosage: 120 MCG; SC; 60 MCG; SC
     Route: 058
     Dates: start: 20080308, end: 20080101
  2. SYMLIN [Suspect]
     Indication: TYPE 2 DIABETES MELLITUS
     Dosage: 120 MCG; SC; 60 MCG; SC
     Route: 058
     Dates: start: 20080101, end: 20081012
  3. HUMALOG [Concomitant]
  4. LANTUS [Concomitant]
  5. MICARDIS HCT [Concomitant]

REACTIONS (1)
  - EMBOLIC CEREBRAL INFARCTION [None]
